FAERS Safety Report 7650976-4 (Version None)
Quarter: 2011Q3

REPORT INFORMATION
  Report Type: 
  Country: None (occurrence: None)
  Receive Date: 20110802
  Receipt Date: 20110725
  Transmission Date: 20111222
  Serious: Yes (Death, Other)
  Sender: FDA-Public Use
  Company Number: US-BAYER-201012057NA

PATIENT
  Age: 46 Year
  Sex: Male
  Weight: 136.96 kg

DRUGS (45)
  1. AMICAR [Concomitant]
     Indication: CORONARY ARTERY BYPASS
     Dosage: 10 G, OVER 10 MINUTES
     Route: 042
     Dates: start: 20000120, end: 20000120
  2. VANCOMYCIN [Concomitant]
     Dosage: 1 G, UNK
     Route: 042
     Dates: start: 20000120, end: 20000120
  3. TENORETIC [Concomitant]
     Dosage: 1/2 PILL DAILY
     Route: 048
  4. VECURONIUM BROMIDE [Concomitant]
     Dosage: 15 MG, UNK
     Route: 042
     Dates: start: 20000120, end: 20000120
  5. SUCCINYLCHOLINE CHLORIDE [Concomitant]
     Dosage: 140 MG, UNK
     Route: 042
     Dates: start: 20000120, end: 20000120
  6. INSULIN [Concomitant]
     Dosage: 53 U, UNK
     Route: 042
     Dates: start: 20000121, end: 20000121
  7. LASIX [Concomitant]
     Dosage: 40 MG, BID
     Route: 048
     Dates: start: 20000122
  8. TRASYLOL [Suspect]
     Indication: THORACIC OPERATION
     Dosage: 50 ML/HR INFUSION
     Route: 042
     Dates: start: 20000121, end: 20000121
  9. TRASYLOL [Suspect]
     Indication: MEDIASTINAL HAEMORRHAGE
     Dosage: 1 MG/ MINUTE INFUSION
     Dates: start: 20000121, end: 20000121
  10. AMICAR [Concomitant]
     Dosage: 1 G/ HOUR X 5 HOURS
     Route: 042
     Dates: start: 20000120
  11. THIOPENTAL SODIUM [Concomitant]
     Dosage: 300 MG, UNK
     Route: 042
     Dates: start: 20000120, end: 20000120
  12. NITROGLYCERIN [Concomitant]
     Dosage: 300 MCG
     Route: 042
     Dates: start: 20000120, end: 20000120
  13. PROPOFOL [Concomitant]
     Dosage: UNK (DRIP)
     Route: 042
     Dates: start: 20000120, end: 20000120
  14. PLATELETS [Concomitant]
     Dosage: 6 U, UNK
     Route: 042
     Dates: start: 20000120, end: 20000120
  15. ACETYLSALICYLIC ACID SRT [Concomitant]
     Indication: HEADACHE
     Dosage: 325 MG, QD
     Route: 048
  16. LOPRESSOR [Concomitant]
     Dosage: 25 MG, UEVERY 8 HOURS
     Route: 048
     Dates: start: 20000119
  17. VERSED [Concomitant]
     Dosage: 2 MG, UNK
     Route: 042
     Dates: start: 20000120, end: 20000120
  18. LABETALOL HCL [Concomitant]
     Dosage: 20 MCG
     Route: 042
     Dates: start: 20000120, end: 20000120
  19. HEPARIN [Concomitant]
     Dosage: 53000 U, UNK
     Route: 042
     Dates: start: 20000120, end: 20000120
  20. EPINEPHRINE [Concomitant]
     Dosage: UNK (DRIP)
     Route: 042
     Dates: start: 20000121, end: 20000121
  21. LASIX [Concomitant]
     Dosage: 40 MG, QD
     Dates: start: 20000128
  22. FRESH FROZEN PLASMA [Concomitant]
     Dosage: 4 U, UNK
     Route: 042
     Dates: start: 20000120, end: 20000120
  23. FENTANYL [Concomitant]
     Dosage: 500 MCG
     Route: 042
     Dates: start: 20000120, end: 20000120
  24. FENTANYL [Concomitant]
     Dosage: UNK
     Route: 042
     Dates: start: 20000121, end: 20000121
  25. PHENYLEPHRINE HCL [Concomitant]
     Dosage: UNK (DRIP)
     Route: 042
     Dates: start: 20000121, end: 20000121
  26. ALBUMIN (HUMAN) [Concomitant]
     Dosage: 250 ML, UNK
     Route: 042
     Dates: start: 20000121, end: 20000121
  27. LOVENOX [Concomitant]
     Dosage: 1 MG/KG, BID
     Route: 058
     Dates: start: 20000119
  28. ISOVUE-128 [Concomitant]
     Indication: CATHETERISATION CARDIAC
     Dosage: 95 CC
     Dates: start: 20000118
  29. DOPAMINE HCL [Concomitant]
     Dosage: UNK (DRIP)
     Route: 042
     Dates: start: 20000120, end: 20000120
  30. PAPAVERINE [Concomitant]
     Dosage: 60 MG, UNK
     Route: 042
     Dates: start: 20000121, end: 20000121
  31. ACCUPRIL [Concomitant]
     Dosage: UNK
     Dates: start: 19970101
  32. NAPROXEN (ALEVE) [Concomitant]
  33. NITROGLYCERIN [Concomitant]
     Dosage: UNK, (DRIP)
     Route: 042
     Dates: start: 20000121, end: 20000121
  34. DOPAMINE HCL [Concomitant]
     Dosage: UNK (DRIP)
     Route: 042
     Dates: start: 20000121, end: 20000121
  35. ESMOLOL [Concomitant]
     Dosage: 10 MG, UNK
     Route: 042
     Dates: start: 20000120, end: 20000120
  36. ANCEF [Concomitant]
     Dosage: UNK
     Route: 042
     Dates: start: 20000120, end: 20000120
  37. GENTAMYCIN SULFATE [Concomitant]
     Dosage: 80 MG, UNK
     Route: 042
     Dates: start: 20000120, end: 20000120
  38. LEVOPHED [Concomitant]
     Dosage: UNK
     Route: 042
     Dates: start: 20000121, end: 20000121
  39. TRASYLOL [Suspect]
     Indication: CORONARY ARTERY BYPASS
     Dosage: UNK
  40. VERSED [Concomitant]
     Dosage: 2 MG, UNK
     Route: 042
     Dates: start: 20000121, end: 20000121
  41. LASIX [Concomitant]
     Indication: OEDEMA PERIPHERAL
     Dosage: UNK
     Route: 042
     Dates: start: 20000121, end: 20000121
  42. METHYLENE BLUE [Concomitant]
     Dosage: 3 ML, UNK
     Route: 042
     Dates: start: 20000121, end: 20000121
  43. RED BLOOD CELLS [Concomitant]
     Dosage: 13 U, UNK
     Route: 042
     Dates: start: 20000120, end: 20000120
  44. ZOCOR [Concomitant]
     Dosage: 80 MG, AT BEDTIME
     Route: 048
  45. PLAVIX [Concomitant]
     Dosage: 75 MG, BID
     Route: 048
     Dates: start: 20000119

REACTIONS (14)
  - RENAL INJURY [None]
  - EMOTIONAL DISTRESS [None]
  - UNEVALUABLE EVENT [None]
  - RENAL IMPAIRMENT [None]
  - MULTI-ORGAN FAILURE [None]
  - ANXIETY [None]
  - PAIN [None]
  - INJURY [None]
  - MYOCARDIAL INFARCTION [None]
  - FEAR [None]
  - ANHEDONIA [None]
  - STRESS [None]
  - DEATH [None]
  - RENAL FAILURE [None]
